FAERS Safety Report 5966458-1 (Version None)
Quarter: 2008Q4

REPORT INFORMATION
  Report Type: 
  Country: None (occurrence: None)
  Receive Date: 20081125
  Receipt Date: 20081117
  Transmission Date: 20090506
  Serious: No
  Sender: FDA-Public Use
  Company Number: CN-ROCHE-587139

PATIENT
  Age: 35 Year
  Sex: Male

DRUGS (5)
  1. CEFTRIAXONE [Suspect]
     Route: 041
     Dates: start: 20030710, end: 20030710
  2. CEFTRIAXONE [Suspect]
     Dosage: THE INDICATION IS PHARYNGALGIA AND COUGH.
     Route: 041
     Dates: start: 20030801, end: 20030801
  3. INDOMETHACIN [Suspect]
     Route: 048
  4. GLUCOSE INJECTION [Concomitant]
     Route: 041
     Dates: start: 20030710, end: 20030710
  5. GLUCOSE INJECTION [Concomitant]
     Route: 041
     Dates: start: 20030801, end: 20030801

REACTIONS (4)
  - ARTHRALGIA [None]
  - COUGH [None]
  - MUSCULAR WEAKNESS [None]
  - OROPHARYNGEAL PAIN [None]
